FAERS Safety Report 8325560-X (Version None)
Quarter: 2012Q2

REPORT INFORMATION
  Report Type: 
  Country: None (occurrence: None)
  Receive Date: 20120501
  Receipt Date: 20120420
  Transmission Date: 20120825
  Serious: Yes (Other)
  Sender: FDA-Public Use
  Company Number: US-JNJFOC-20120410132

PATIENT
  Sex: Male
  Weight: 75.75 kg

DRUGS (3)
  1. REMICADE [Suspect]
     Indication: CROHN'S DISEASE
     Route: 042
  2. REMICADE [Suspect]
     Route: 042
  3. LIALDA [Concomitant]
     Indication: ABDOMINAL DISCOMFORT
     Dosage: 4.8 MG
     Route: 048
     Dates: start: 20040101

REACTIONS (4)
  - WEIGHT INCREASED [None]
  - CROHN'S DISEASE [None]
  - THERAPEUTIC RESPONSE DECREASED [None]
  - INFECTION [None]
